FAERS Safety Report 20563875 (Version 6)
Quarter: 2024Q1

REPORT INFORMATION
  Report Type: Spontaneous
  Country: CA (occurrence: CA)
  Receive Date: 20220308
  Receipt Date: 20240118
  Transmission Date: 20240410
  Serious: Yes (Other)
  Sender: FDA-Public Use
  Company Number: CA-CELLTRION INC.-2022CA002730

PATIENT

DRUGS (11)
  1. INFLECTRA [Suspect]
     Active Substance: INFLIXIMAB-DYYB
     Indication: Colitis ulcerative
     Dosage: 400 MG, Q (EVERY) 0, 2, 6 WEEKS, THEN EVERY 8 WEEKS
     Route: 042
     Dates: start: 20190314, end: 20190429
  2. INFLECTRA [Suspect]
     Active Substance: INFLIXIMAB-DYYB
     Dosage: 400 MG (RESCUE DOSE)
     Route: 042
     Dates: start: 20190510, end: 20190510
  3. INFLECTRA [Suspect]
     Active Substance: INFLIXIMAB-DYYB
     Dosage: 800 MG (RESCUE DOSE)
     Route: 042
     Dates: start: 20190516, end: 20190516
  4. INFLECTRA [Suspect]
     Active Substance: INFLIXIMAB-DYYB
     Dosage: 800 MG, EVERY 6 WEEKS
     Route: 042
     Dates: start: 20190624
  5. INFLECTRA [Suspect]
     Active Substance: INFLIXIMAB-DYYB
     Dosage: 800 MG , EVERY 6 WEEKS
     Route: 042
     Dates: start: 20221116
  6. INFLECTRA [Suspect]
     Active Substance: INFLIXIMAB-DYYB
     Dosage: 800 MG , EVERY 6 WEEKS
     Route: 042
     Dates: start: 20231018
  7. INFLECTRA [Suspect]
     Active Substance: INFLIXIMAB-DYYB
     Dosage: 800 MG , EVERY 6 WEEKS (12 WEEKS AFTER LAST TREATMENT)
     Route: 042
     Dates: start: 20240110
  8. PREDNISONE [Concomitant]
     Active Substance: PREDNISONE
     Dosage: 1 DF, 40 MG TAPER CURRENTLY AND 2 MONTHS AGO
     Route: 048
     Dates: start: 2019
  9. PREDNISONE [Concomitant]
     Active Substance: PREDNISONE
     Dosage: 1 MG
  10. PREDNISONE [Concomitant]
     Active Substance: PREDNISONE
     Dosage: 30 MG
  11. PREDNISONE [Concomitant]
     Active Substance: PREDNISONE
     Dosage: 1 DF 40MG TAPER CURRENTLY AND 2 MONTHS AGO
     Route: 048

REACTIONS (13)
  - Haemoglobin decreased [Recovering/Resolving]
  - Drug ineffective [Unknown]
  - Drug level above therapeutic [Unknown]
  - Blood triglycerides increased [Unknown]
  - White blood cell count decreased [Unknown]
  - Neutrophil count decreased [Not Recovered/Not Resolved]
  - Condition aggravated [Recovering/Resolving]
  - Erythema [Unknown]
  - Abscess [Unknown]
  - Blood albumin decreased [Unknown]
  - Loss of personal independence in daily activities [Unknown]
  - Inappropriate schedule of product administration [Unknown]
  - Off label use [Unknown]

NARRATIVE: CASE EVENT DATE: 20190101
